FAERS Safety Report 8266192-1 (Version None)
Quarter: 2012Q2

REPORT INFORMATION
  Report Type: 
  Country: None (occurrence: None)
  Receive Date: 20120406
  Receipt Date: 20120320
  Transmission Date: 20120825
  Serious: Yes (Other)
  Sender: FDA-Public Use
  Company Number: US-PFIZER INC-2012081422

PATIENT

DRUGS (6)
  1. FAMOTIDINE [Suspect]
     Indication: PRODUCT USED FOR UNKNOWN INDICATION
     Dosage: UNK
     Route: 065
  2. ASPIRIN [Suspect]
     Dosage: UNK
     Route: 065
  3. IBUPROFEN [Suspect]
     Indication: PAIN
     Dosage: 800 MG, 3X/DAY
     Route: 065
  4. IBUPROFEN [Suspect]
     Indication: OSTEOARTHRITIS
     Dosage: 800 MG, 3X/DAY
     Route: 065
  5. IBUPROFEN [Suspect]
     Dosage: 800 MG, 3X/DAY
     Route: 065
  6. IBUPROFEN [Suspect]
     Indication: RHEUMATOID ARTHRITIS
     Dosage: 800 MG, 3X/DAY
     Route: 065

REACTIONS (7)
  - GASTRIC ULCER [None]
  - GASTRITIS EROSIVE [None]
  - GASTROINTESTINAL HAEMORRHAGE [None]
  - OESOPHAGEAL ULCER [None]
  - DUODENAL ULCER [None]
  - NAUSEA [None]
  - DYSPEPSIA [None]
